FAERS Safety Report 11773685 (Version 1)
Quarter: 2015Q4

REPORT INFORMATION
  Report Type: Spontaneous
  Country: US (occurrence: US)
  Receive Date: 20151124
  Receipt Date: 20151124
  Transmission Date: 20160304
  Serious: No
  Sender: FDA-Public Use
  Company Number: US-BAYER-2015-474204

PATIENT
  Age: 35 Year
  Sex: Male
  Weight: 104.31 kg

DRUGS (1)
  1. MIRALAX [Suspect]
     Active Substance: POLYETHYLENE GLYCOL 3350
     Dosage: 7 DF, ONCE
     Route: 048
     Dates: start: 2014

REACTIONS (1)
  - Off label use [None]

NARRATIVE: CASE EVENT DATE: 2014
